FAERS Safety Report 11723072 (Version 1)
Quarter: 2015Q4

REPORT INFORMATION
  Report Type: Spontaneous
  Country: US (occurrence: US)
  Receive Date: 20151111
  Receipt Date: 20151111
  Transmission Date: 20160304
  Serious: Yes (Other)
  Sender: FDA-Public Use
  Company Number: US-PROCTER+GAMBLE TECHNICAL CENTRES LTD-GS15020264

PATIENT
  Sex: Female

DRUGS (1)
  1. METAMUCIL THERAPY FOR REGULARITY [Suspect]
     Active Substance: PSYLLIUM HUSK
     Dosage: UNKNOWN USE AND FREQUENCY
     Route: 048

REACTIONS (2)
  - Transplant rejection [Not Recovered/Not Resolved]
  - Urticaria [Unknown]
